FAERS Safety Report 4902314-5 (Version None)
Quarter: 2006Q1

REPORT INFORMATION
  Report Type: 
  Country: None (occurrence: None)
  Receive Date: 20060207
  Receipt Date: 20060120
  Transmission Date: 20060701
  Serious: Yes (Life-Threatening)
  Sender: FDA-Public Use
  Company Number: 2006AP00358

PATIENT
  Age: 33017 Day
  Sex: Female

DRUGS (18)
  1. OMEPRAZOLE [Suspect]
     Indication: GASTRIC ULCER
     Route: 048
     Dates: start: 20060107, end: 20060114
  2. ACECOL [Concomitant]
     Dosage: STARTED BEFORE JANUARY 2003
  3. EC-DOPARL [Concomitant]
     Dosage: STARTED BEFORE JANUARY 2003
  4. AMLODIN [Concomitant]
     Dosage: STARTED BEFORE JANUARY 2003
  5. LASIX [Concomitant]
     Dosage: STARTED BEFORE JANUARY 2003
  6. DIGOXIN [Concomitant]
     Dosage: STARTED BEFORE JANUARY 2003
  7. ASPIRIN [Concomitant]
     Dosage: STARTED BEFORE JANUARY 2003
  8. ULCERLMIN [Concomitant]
     Dosage: STARTED BEFORE JANUARY 2003
  9. MARZULENE [Concomitant]
     Dosage: STARTED BEFORE JANUARY 2003
  10. MAGNESIUM OXIDE [Concomitant]
     Dosage: STARTED BEFORE JANUARY 2003
  11. PARLODEL [Concomitant]
     Dates: start: 20030208
  12. UBRETID [Concomitant]
     Dates: start: 20040117
  13. NAUZELIN [Concomitant]
     Dates: start: 20060103
  14. BACCIDAL [Concomitant]
     Dates: start: 20060112, end: 20060116
  15. SULPYRINE [Concomitant]
     Dates: start: 20060112, end: 20060116
  16. RESTAMIN [Concomitant]
     Dates: start: 20060112, end: 20060116
  17. MEDICON [Concomitant]
     Dates: start: 20060112, end: 20060116
  18. TM [Concomitant]
     Dates: start: 20060112, end: 20060116

REACTIONS (2)
  - BRADYCARDIA [None]
  - HYPERKALAEMIA [None]
